FAERS Safety Report 17840749 (Version 1)
Quarter: 2020Q2

REPORT INFORMATION
  Report Type: Spontaneous
  Country: FR (occurrence: FR)
  Receive Date: 20200529
  Receipt Date: 20200529
  Transmission Date: 20200714
  Serious: Yes (Death)
  Sender: FDA-Public Use
  Company Number: FR-ROCHE-2609955

PATIENT
  Age: 69 Year
  Sex: Female
  Weight: 45 kg

DRUGS (5)
  1. VALIUM [Suspect]
     Active Substance: DIAZEPAM
     Indication: PRODUCT USED FOR UNKNOWN INDICATION
     Route: 048
     Dates: start: 20191208, end: 20200218
  2. ABILIFY [Suspect]
     Active Substance: ARIPIPRAZOLE
     Indication: PRODUCT USED FOR UNKNOWN INDICATION
     Route: 048
     Dates: start: 20200113, end: 20200120
  3. PARAFFIN, LIQUID [Concomitant]
     Active Substance: MINERAL OIL
  4. CHLORURE DE SODIUM [Concomitant]
     Active Substance: SODIUM CHLORIDE
  5. LEPONEX [Suspect]
     Active Substance: CLOZAPINE
     Indication: PRODUCT USED FOR UNKNOWN INDICATION
     Route: 048
     Dates: start: 20200121, end: 20200124

REACTIONS (2)
  - Akathisia [Not Recovered/Not Resolved]
  - Choking [Fatal]

NARRATIVE: CASE EVENT DATE: 202002
